FAERS Safety Report 7503243-3 (Version None)
Quarter: 2011Q2

REPORT INFORMATION
  Report Type: 
  Country: None (occurrence: None)
  Receive Date: 20110525
  Receipt Date: 20101027
  Transmission Date: 20111010
  Serious: No
  Sender: FDA-Public Use
  Company Number: A0889117A

PATIENT
  Sex: Male

DRUGS (1)
  1. BACTROBAN [Suspect]
     Indication: SKIN LESION
     Dosage: 1APP SINGLE DOSE
     Route: 045

REACTIONS (2)
  - CONDITION AGGRAVATED [None]
  - DRUG INEFFECTIVE [None]
